FAERS Safety Report 15546033 (Version 1)
Quarter: 2018Q4

REPORT INFORMATION
  Report Type: Spontaneous
  Country: AR (occurrence: AR)
  Receive Date: 20181024
  Receipt Date: 20181024
  Transmission Date: 20190205
  Serious: Yes (Hospitalization, Other)
  Sender: FDA-Public Use
  Company Number: PHHY2018AR121066

PATIENT
  Sex: Male

DRUGS (2)
  1. TEGRETOL [Suspect]
     Active Substance: CARBAMAZEPINE
     Indication: EPILEPSY
     Dosage: 4 DF, QD (400, UNITS NOT PROVIDED)
     Route: 065
  2. LOTOQUIS SIMPLE [Concomitant]
     Indication: PRODUCT USED FOR UNKNOWN INDICATION
     Route: 065

REACTIONS (5)
  - Seizure [Recovering/Resolving]
  - Fatigue [Unknown]
  - Hypertension [Recovering/Resolving]
  - Fall [Recovering/Resolving]
  - Depression [Recovering/Resolving]
